FAERS Safety Report 19153198 (Version 1)
Quarter: 2021Q2

REPORT INFORMATION
  Report Type: Spontaneous
  Country: US (occurrence: US)
  Receive Date: 20210417
  Receipt Date: 20210417
  Transmission Date: 20210717
  Serious: Yes (Death, Hospitalization)
  Sender: FDA-Public Use
  Company Number: None

PATIENT
  Age: 18 Year
  Sex: Male
  Weight: 68.5 kg

DRUGS (6)
  1. CYTARABINE. [Suspect]
     Active Substance: CYTARABINE
     Dates: end: 20210316
  2. PREDNISOLONE. [Suspect]
     Active Substance: PREDNISOLONE
     Dates: end: 20210330
  3. PREDNISONE. [Suspect]
     Active Substance: PREDNISONE
     Dates: end: 20210319
  4. LEUCOVORIN CALCIUM. [Suspect]
     Active Substance: LEUCOVORIN CALCIUM
     Dates: end: 20210327
  5. VINCRISTINE SULFATE. [Suspect]
     Active Substance: VINCRISTINE SULFATE
     Dates: end: 20210325
  6. ONCASPAR [Suspect]
     Active Substance: PEGASPARGASE

REACTIONS (23)
  - Exfoliative rash [None]
  - Toxic epidermal necrolysis [None]
  - Leukaemic infiltration [None]
  - Brain hypoxia [None]
  - Diarrhoea [None]
  - Brain oedema [None]
  - Respiratory failure [None]
  - Brain herniation [None]
  - Acute respiratory failure [None]
  - Incontinence [None]
  - Abdominal distension [None]
  - Colitis [None]
  - Stevens-Johnson syndrome [None]
  - Pneumocystis jirovecii pneumonia [None]
  - Toxic erythema of chemotherapy [None]
  - Gastrointestinal haemorrhage [None]
  - Tumour lysis syndrome [None]
  - Acute kidney injury [None]
  - Febrile neutropenia [None]
  - Lung infiltration [None]
  - Pneumonia [None]
  - Mucosal inflammation [None]
  - Hypovolaemic shock [None]

NARRATIVE: CASE EVENT DATE: 20210401
